FAERS Safety Report 11648251 (Version 1)
Quarter: 2015Q4

REPORT INFORMATION
  Report Type: Spontaneous
  Country: US (occurrence: US)
  Receive Date: 20151021
  Receipt Date: 20151021
  Transmission Date: 20160304
  Serious: No
  Sender: FDA-Public Use
  Company Number: US-PFIZER INC-2015348842

PATIENT
  Age: 52 Year
  Sex: Male
  Weight: 127 kg

DRUGS (11)
  1. METFORMIN [Concomitant]
     Active Substance: METFORMIN HYDROCHLORIDE
     Dosage: 500 MG, 2X/DAY
  2. GABAPENTIN. [Concomitant]
     Active Substance: GABAPENTIN
     Dosage: 200 MG, 4X/DAY
  3. ROXICODONE [Concomitant]
     Active Substance: OXYCODONE HYDROCHLORIDE
     Dosage: 30 MG, 4X/DAY (30 MG TABLET 1 TAB(S) EVERY 6 HOURS)
  4. OXYCODONE [Concomitant]
     Active Substance: OXYCODONE
     Dosage: 80 MG, 2X/DAY (EVERY 12 HOURS)
  5. SOMA [Concomitant]
     Active Substance: CARISOPRODOL
     Dosage: 350 MG, 3X/DAY
     Route: 048
  6. LYRICA [Suspect]
     Active Substance: PREGABALIN
     Dosage: 50 MG, 3X/DAY
     Route: 048
  7. PROAIR HFA [Concomitant]
     Active Substance: ALBUTEROL SULFATE
     Indication: COUGH
     Dosage: 2 DF, AS NEEDED (2 PUFF(S) 4 TIMES A DAY PRN)
  8. ALBUTEROL. [Concomitant]
     Active Substance: ALBUTEROL
     Dosage: 2 DF, 4X/DAY (90 MCG/INH AEROSOL 2 PUFF(S) 4 TIMES A DAY)
  9. LYRICA [Suspect]
     Active Substance: PREGABALIN
     Indication: DIABETIC NEUROPATHY
     Dosage: 75 MG, 3X/DAY
     Route: 048
  10. PROAIR HFA [Concomitant]
     Active Substance: ALBUTEROL SULFATE
     Indication: WHEEZING
  11. ASPIRIN. [Concomitant]
     Active Substance: ASPIRIN
     Dosage: 81 MG, 1X/DAY

REACTIONS (2)
  - Respiratory tract congestion [Unknown]
  - Cough [Unknown]
